FAERS Safety Report 8800635 (Version 1)
Quarter: 2012Q4

REPORT INFORMATION
  Report Type: 
  Country: US (occurrence: US)
  Receive Date: 20120921
  Receipt Date: 20120921
  Transmission Date: 20130627
  Serious: Yes (Other)
  Sender: FDA-Public Use
  Company Number: US-ROCHE-1126411

PATIENT
  Age: 72 Year
  Sex: Male

DRUGS (10)
  1. AVASTIN [Suspect]
     Indication: OESOPHAGEAL CARCINOMA
     Route: 065
     Dates: start: 20050106, end: 20050121
  2. AVASTIN [Suspect]
     Route: 065
     Dates: start: 20050418, end: 20051114
  3. AVASTIN [Suspect]
     Route: 065
     Dates: start: 20051114
  4. FLUOROURACIL [Concomitant]
  5. LEVOLEUCOVORIN [Concomitant]
  6. CARBOPLATIN [Concomitant]
     Route: 065
     Dates: start: 200502
  7. TAXOTERE [Concomitant]
     Route: 065
     Dates: start: 200502
  8. GEMZAR [Concomitant]
     Route: 065
     Dates: start: 200509
  9. CPT-11 [Concomitant]
  10. CISPLATIN [Concomitant]

REACTIONS (3)
  - Pulmonary embolism [Unknown]
  - Deep vein thrombosis [Unknown]
  - Disease progression [Unknown]
